FAERS Safety Report 7300066-5 (Version None)
Quarter: 2011Q1

REPORT INFORMATION
  Report Type: 
  Country: None (occurrence: None)
  Receive Date: 20110217
  Receipt Date: 20110205
  Transmission Date: 20110831
  Serious: Yes (Death)
  Sender: FDA-Public Use
  Company Number: US-ACTELION-A-US2011-44771

PATIENT

DRUGS (2)
  1. TRACLEER [Suspect]
     Indication: PULMONARY ARTERIAL HYPERTENSION
     Dosage: UNK
     Route: 048
     Dates: start: 20100125
  2. CALCIUM CHANNEL BLOCKERS [Concomitant]

REACTIONS (3)
  - DYSPNOEA [None]
  - FLUID OVERLOAD [None]
  - PULMONARY OEDEMA [None]
